FAERS Safety Report 6398772-2 (Version None)
Quarter: 2009Q4

REPORT INFORMATION
  Report Type: 
  Country: None (occurrence: None)
  Receive Date: 20091007
  Receipt Date: 20090922
  Transmission Date: 20100525
  Serious: Yes (Life-Threatening, Hospitalization)
  Sender: FDA-Public Use
  Company Number: 2009BM000190

PATIENT
  Age: 8 Year
  Sex: Female
  Weight: 0.0175 kg

DRUGS (4)
  1. NAGLAZYME [Suspect]
     Indication: MUCOPOLYSACCHARIDOSIS VI
     Dosage: 20 MG; QW; IVDRIP
     Route: 041
     Dates: start: 20081201
  2. ANTIHISTAMINES [Concomitant]
  3. POLARAMINE [Concomitant]
  4. DIPYRONE [Concomitant]

REACTIONS (10)
  - ACUTE RESPIRATORY FAILURE [None]
  - APHONIA [None]
  - CYANOSIS [None]
  - DISEASE COMPLICATION [None]
  - DISEASE PROGRESSION [None]
  - DYSPNOEA [None]
  - FATIGUE [None]
  - MUCOPOLYSACCHARIDOSIS VI [None]
  - UPPER AIRWAY OBSTRUCTION [None]
  - VOMITING [None]
